FAERS Safety Report 13874791 (Version 1)
Quarter: 2017Q3

REPORT INFORMATION
  Report Type: Spontaneous
  Country: US (occurrence: US)
  Receive Date: 20170816
  Receipt Date: 20170816
  Transmission Date: 20171127
  Serious: No
  Sender: FDA-Public Use
  Company Number: US-ROCHE-1392814

PATIENT
  Age: 89 Year
  Sex: Female

DRUGS (2)
  1. LUCENTIS [Suspect]
     Active Substance: RANIBIZUMAB
     Indication: MACULAR DEGENERATION
     Dosage: RIGHT EYE
     Route: 065
  2. OXYGEN. [Concomitant]
     Active Substance: OXYGEN

REACTIONS (3)
  - Dizziness [Unknown]
  - Malaise [Unknown]
  - Hypoacusis [Unknown]

NARRATIVE: CASE EVENT DATE: 20140429
